FAERS Safety Report 19451135 (Version 1)
Quarter: 2021Q2

REPORT INFORMATION
  Report Type: Report from Study
  Country: US (occurrence: US)
  Receive Date: 20210623
  Receipt Date: 20210623
  Transmission Date: 20210717
  Serious: Yes (Death, Other)
  Sender: FDA-Public Use
  Company Number: US-ACADIA PHARMACEUTICALS INC.-ACA-2021-PIM-002027

PATIENT
  Age: 71 Year
  Sex: Male

DRUGS (16)
  1. BISACODYL. [Concomitant]
     Active Substance: BISACODYL
  2. FLEET ENEMA [Concomitant]
     Active Substance: SODIUM PHOSPHATE, DIBASIC\SODIUM PHOSPHATE, MONOBASIC
  3. MUCINEX [Concomitant]
     Active Substance: GUAIFENESIN
  4. NUPLAZID [Suspect]
     Active Substance: PIMAVANSERIN TARTRATE
     Indication: PARKINSON^S DISEASE PSYCHOSIS
     Dosage: 10 MILLIGRAM, QD, AT BEDTIME
     Route: 048
     Dates: start: 20210408
  5. RIVASTIGMINE. [Concomitant]
     Active Substance: RIVASTIGMINE
  6. BENAZEPRIL [Concomitant]
     Active Substance: BENAZEPRIL HYDROCHLORIDE
  7. STALEVO [Concomitant]
     Active Substance: CARBIDOPA\ENTACAPONE\LEVODOPA
  8. MILK OF MAGNESIA [Concomitant]
     Active Substance: MAGNESIUM HYDROXIDE
  9. GLUCAGON. [Concomitant]
     Active Substance: GLUCAGON
  10. MIRALAX [Concomitant]
     Active Substance: POLYETHYLENE GLYCOL 3350
  11. NORVASC [Concomitant]
     Active Substance: AMLODIPINE BESYLATE
  12. SELEGILINE [Concomitant]
     Active Substance: SELEGILINE
  13. TYLENOL [Concomitant]
     Active Substance: ACETAMINOPHEN
  14. VITAMIN B12 [Concomitant]
     Active Substance: CYANOCOBALAMIN
  15. SENNA PLUS [Concomitant]
     Active Substance: DOCUSATE SODIUM\SENNOSIDES\SENNOSIDES A AND B
  16. ASPIRIN [ACETYLSALICYLIC ACID] [Concomitant]
     Active Substance: ASPIRIN

REACTIONS (2)
  - Underdose [Unknown]
  - Cardiac failure [Recovered/Resolved]

NARRATIVE: CASE EVENT DATE: 20210408
